FAERS Safety Report 18582360 (Version 1)
Quarter: 2020Q4

REPORT INFORMATION
  Report Type: Spontaneous
  Country: CN (occurrence: CN)
  Receive Date: 20201205
  Receipt Date: 20201205
  Transmission Date: 20210114
  Serious: Yes (Other)
  Sender: FDA-Public Use
  Company Number: CN-LUPIN PHARMACEUTICALS INC.-2020-09756

PATIENT
  Age: 37 Year
  Sex: Male

DRUGS (8)
  1. METHYLPREDNISOLONE. [Suspect]
     Active Substance: METHYLPREDNISOLONE
     Indication: COVID-19
     Dosage: ONCE DAILY
     Route: 042
     Dates: start: 202002
  2. CEFOPERAZONE;SULBACTAM SODIUM [Concomitant]
     Indication: EVIDENCE BASED TREATMENT
     Dosage: UNK
     Route: 065
     Dates: start: 2020
  3. MOXIFLOXACIN. [Concomitant]
     Active Substance: MOXIFLOXACIN
     Indication: EVIDENCE BASED TREATMENT
     Dosage: ONCE DAILY
     Route: 065
     Dates: start: 202002
  4. THYMOSIN [Concomitant]
     Active Substance: THYMOSIN
     Indication: COVID-19
     Dosage: UNK
     Route: 065
  5. ARBIDOL [Concomitant]
     Active Substance: UMIFENOVIR
     Indication: COVID-19
     Dosage: UNK
     Route: 065
     Dates: start: 202002
  6. TOCILIZUMAB. [Concomitant]
     Active Substance: TOCILIZUMAB
     Indication: COVID-19
     Dosage: UNK
     Route: 065
     Dates: start: 202003
  7. ACETYLCYSTEINE. [Concomitant]
     Active Substance: ACETYLCYSTEINE
     Indication: DRUG THERAPY
     Dosage: UNK
     Route: 065
     Dates: start: 2020
  8. IMMUNOGLOBULINS NOS [Concomitant]
     Active Substance: IMMUNE GLOBULIN NOS
     Indication: COVID-19
     Route: 065
     Dates: start: 202003

REACTIONS (1)
  - Off label use [Unknown]

NARRATIVE: CASE EVENT DATE: 2020
